FAERS Safety Report 9820250 (Version 1)
Quarter: 2013Q4

REPORT INFORMATION
  Report Type: Spontaneous
  Country: GB (occurrence: None)
  Receive Date: 20131024
  Receipt Date: 20131024
  Transmission Date: 20140711
  Serious: Yes (Life-Threatening, Hospitalization)
  Sender: FDA-Public Use
  Company Number: E2B_00001047

PATIENT
  Age: 34 Year
  Sex: Female

DRUGS (3)
  1. QUETIAPINE (UNKNOWN) [Suspect]
     Indication: POSTPARTUM DEPRESSION
     Dosage: 50 MG, 25 MG, 2 IN 1 D, ORAL
     Route: 048
  2. SOTALOL (UNKNOWN) [Concomitant]
  3. ALVERINE (UNKNOWN) [Concomitant]

REACTIONS (1)
  - Electrocardiogram QT prolonged [None]
